FAERS Safety Report 23015946 (Version 3)
Quarter: 2024Q2

REPORT INFORMATION
  Report Type: Report from Study
  Country: FR (occurrence: FR)
  Receive Date: 20231002
  Receipt Date: 20240620
  Transmission Date: 20240716
  Serious: Yes (Death)
  Sender: FDA-Public Use
  Company Number: FR-DSJP-DSE-2023-140342

PATIENT
  Sex: Female
  Weight: 50 kg

DRUGS (2)
  1. ENHERTU [Suspect]
     Active Substance: FAM-TRASTUZUMAB DERUXTECAN-NXKI
     Indication: HER2 positive breast cancer
     Dosage: 5.4 MG/KG, CYCLIC
     Route: 065
     Dates: start: 20220920
  2. ENHERTU [Suspect]
     Active Substance: FAM-TRASTUZUMAB DERUXTECAN-NXKI
     Indication: Breast cancer metastatic

REACTIONS (3)
  - Bronchopulmonary aspergillosis [Fatal]
  - Clostridium colitis [Fatal]
  - Urinary tract infection [Fatal]
